FAERS Safety Report 11925653 (Version 1)
Quarter: 2016Q1

REPORT INFORMATION
  Report Type: Report from Study
  Country: FR (occurrence: FR)
  Receive Date: 20160118
  Receipt Date: 20160118
  Transmission Date: 20160526
  Serious: Yes (Hospitalization, Other)
  Sender: FDA-Public Use
  Company Number: FR-009507513-1601FRA003371

PATIENT
  Sex: Female
  Weight: 42 kg

DRUGS (11)
  1. XELODA [Suspect]
     Active Substance: CAPECITABINE
     Indication: PANCREATIC NEUROENDOCRINE TUMOUR METASTATIC
     Dosage: 800 MG, QD (750 MG/M2) FROM DAY-1 TO DAY-14.
     Dates: start: 20140715, end: 20150722
  2. OROCAL D3 [Concomitant]
     Active Substance: CALCIUM CARBONATE\CHOLECALCIFEROL
     Indication: CALCIUM DEFICIENCY
     Dosage: 1 TABLET, BID
     Route: 048
     Dates: start: 20150722
  3. OXYNORMORO [Concomitant]
     Active Substance: OXYCODONE
     Indication: PAIN
     Dosage: UP TO 6 PER DAY
     Dates: start: 20151014
  4. OXYCONTIN [Concomitant]
     Active Substance: OXYCODONE HYDROCHLORIDE
     Indication: PAIN
     Dosage: 30 MG, BID
     Dates: start: 20151014
  5. SOMATULINE LP [Suspect]
     Active Substance: LANREOTIDE ACETATE
     Indication: PANCREATIC NEUROENDOCRINE TUMOUR METASTATIC
     Dosage: 120 MG, QM
     Dates: start: 20140422
  6. KETOPROFEN. [Concomitant]
     Active Substance: KETOPROFEN
     Indication: PAIN
     Dosage: TOTAL DAILY DOSE: 750 MG/M2, FREQUENCY: 100 MG, BID
  7. TEMODAL [Suspect]
     Active Substance: TEMOZOLOMIDE
     Indication: PANCREATIC NEUROENDOCRINE TUMOUR METASTATIC
     Dosage: 210 MG, QD (200 MG/M2) ONCE PER DAY FROM DAY-10 TO DAY-14
     Dates: start: 20140715, end: 20150722
  8. INNOHEP [Concomitant]
     Active Substance: TINZAPARIN SODIUM
     Indication: THROMBOSIS
     Dosage: 0.4 ML, QD
     Route: 058
     Dates: start: 20151014
  9. MOVICOL [Concomitant]
     Active Substance: POLYETHYLENE GLYCOL 3350\POTASSIUM CHLORIDE\SODIUM BICARBONATE\SODIUM CHLORIDE
     Indication: CONSTIPATION
     Dosage: 2 TO 4 SACHETS
  10. LAROXYL [Concomitant]
     Active Substance: AMITRIPTYLINE
     Indication: NEUROPATHY PERIPHERAL
     Dosage: 15 GTT, QD
     Dates: start: 20150902
  11. AFINITOR [Suspect]
     Active Substance: EVEROLIMUS
     Indication: PANCREATIC NEUROENDOCRINE TUMOUR METASTATIC
     Dosage: 10 MG, QD
     Dates: start: 20150804, end: 20151020

REACTIONS (18)
  - Pain [Unknown]
  - Nausea [Unknown]
  - Oedema peripheral [Unknown]
  - Neoplasm progression [Unknown]
  - Diarrhoea [Unknown]
  - Nausea [Unknown]
  - Hypophosphataemia [Unknown]
  - Abdominal pain upper [Recovering/Resolving]
  - Faeces discoloured [Unknown]
  - Out of specification test results [Unknown]
  - Constipation [Unknown]
  - Weight decreased [Recovered/Resolved]
  - Tachycardia [Unknown]
  - Hypoaesthesia [Unknown]
  - Vomiting [Recovered/Resolved]
  - Vomiting [Unknown]
  - Neutropenia [Unknown]
  - Asthenia [Unknown]

NARRATIVE: CASE EVENT DATE: 20150105
